FAERS Safety Report 14513455 (Version 1)
Quarter: 2018Q1

REPORT INFORMATION
  Report Type: Spontaneous
  Country: US (occurrence: US)
  Receive Date: 20180209
  Receipt Date: 20180209
  Transmission Date: 20180509
  Serious: No
  Sender: FDA-Public Use
  Company Number: US-ALLERGAN-1703583US

PATIENT
  Sex: Female

DRUGS (3)
  1. FLUOROMETHOLONE. [Concomitant]
     Active Substance: FLUOROMETHOLONE
     Indication: SUPPLEMENTATION THERAPY
     Route: 047
  2. ARTIFICIAL TEARS [Suspect]
     Active Substance: GLYCERIN\HYPROMELLOSES\POLYETHYLENE GLYCOL 400
     Indication: DRY EYE
     Dosage: UNK UNK, PRN
     Route: 047
     Dates: start: 201612, end: 201612
  3. RESTASIS [Suspect]
     Active Substance: CYCLOSPORINE
     Indication: DRY EYE
     Dosage: UNK, BID
     Route: 047

REACTIONS (6)
  - Conjunctival haemorrhage [Not Recovered/Not Resolved]
  - Ocular hyperaemia [Not Recovered/Not Resolved]
  - Expired product administered [Unknown]
  - Eye irritation [Not Recovered/Not Resolved]
  - Wrong technique in product usage process [Unknown]
  - Eye pain [Not Recovered/Not Resolved]
